FAERS Safety Report 16797610 (Version 2)
Quarter: 2019Q3

REPORT INFORMATION
  Report Type: Spontaneous
  Country: US (occurrence: US)
  Receive Date: 20190912
  Receipt Date: 20190919
  Transmission Date: 20191005
  Serious: No
  Sender: FDA-Public Use
  Company Number: US-TEVA-2019-US-1105902

PATIENT
  Sex: Female

DRUGS (1)
  1. SYNRIBO [Suspect]
     Active Substance: OMACETAXINE MEPESUCCINATE
     Indication: CHRONIC MYELOID LEUKAEMIA
     Dosage: 2.275MG/0.65ML, FOR 14 DAYS
     Route: 065
     Dates: start: 20190904

REACTIONS (3)
  - Fatigue [Unknown]
  - Nausea [Unknown]
  - Vomiting [Unknown]
